FAERS Safety Report 23148198 (Version 1)
Quarter: 2023Q4

REPORT INFORMATION
  Report Type: Spontaneous
  Country: US (occurrence: None)
  Receive Date: 20231101
  Receipt Date: 20231101
  Transmission Date: 20240109
  Serious: Yes (Life-Threatening, Other)
  Sender: FDA-Public Use
  Company Number: None

PATIENT
  Age: 37 Year
  Sex: Female
  Weight: 90.72 kg

DRUGS (2)
  1. TOPIRAMATE [Suspect]
     Active Substance: TOPIRAMATE
  2. LAMICTAL [Suspect]
     Active Substance: LAMOTRIGINE

REACTIONS (7)
  - Rash [None]
  - Swollen tongue [None]
  - Vulvovaginal swelling [None]
  - Gastrointestinal disorder [None]
  - Swelling [None]
  - Acrochordon [None]
  - Breast discolouration [None]

NARRATIVE: CASE EVENT DATE: 20230730
